FAERS Safety Report 8516194-2 (Version None)
Quarter: 2012Q3

REPORT INFORMATION
  Report Type: 
  Country: None (occurrence: None)
  Receive Date: 20120717
  Receipt Date: 20120713
  Transmission Date: 20120928
  Serious: Yes (Other)
  Sender: FDA-Public Use
  Company Number: US-ROCHE-1056141

PATIENT
  Sex: Female
  Weight: 56.75 kg

DRUGS (1)
  1. ACCUTANE [Suspect]
     Indication: ACNE
     Dosage: DOSE INCREASED TO 80 MG DAILY
     Route: 048
     Dates: start: 19990312, end: 19990801

REACTIONS (10)
  - IRRITABLE BOWEL SYNDROME [None]
  - INFLAMMATORY BOWEL DISEASE [None]
  - DRY MOUTH [None]
  - CROHN'S DISEASE [None]
  - COLITIS ULCERATIVE [None]
  - PSEUDOPOLYP [None]
  - DRY EYE [None]
  - ANXIETY [None]
  - OSTEOPENIA [None]
  - MUCOSAL DRYNESS [None]
